FAERS Safety Report 10597426 (Version 2)
Quarter: 2014Q4

REPORT INFORMATION
  Report Type: Report from Study
  Country: CN (occurrence: CN)
  Receive Date: 20141121
  Receipt Date: 20141209
  Transmission Date: 20150529
  Serious: Yes (Death, Hospitalization)
  Sender: FDA-Public Use
  Company Number: PHHY2014CN151735

PATIENT
  Age: 18 Year
  Sex: Male

DRUGS (1)
  1. TASIGNA [Suspect]
     Active Substance: NILOTINIB
     Indication: CHRONIC MYELOID LEUKAEMIA
     Dosage: 400 MG, BID
     Route: 048
     Dates: start: 20140401, end: 201408

REACTIONS (12)
  - Upper respiratory tract infection [Unknown]
  - Slow response to stimuli [Unknown]
  - White blood cell count increased [Unknown]
  - Confusional state [Unknown]
  - Tachypnoea [Unknown]
  - Red blood cell count decreased [Unknown]
  - Platelet count decreased [Unknown]
  - Chronic myeloid leukaemia [Fatal]
  - Sepsis [Unknown]
  - Coma [Unknown]
  - Cerebrovascular accident [Fatal]
  - Pyrexia [Unknown]

NARRATIVE: CASE EVENT DATE: 20140811
